FAERS Safety Report 25216595 (Version 1)
Quarter: 2025Q2

REPORT INFORMATION
  Report Type: Spontaneous
  Country: ES (occurrence: ES)
  Receive Date: 20250419
  Receipt Date: 20250419
  Transmission Date: 20250716
  Serious: Yes (Hospitalization)
  Sender: ACCORD
  Company Number: None

PATIENT
  Age: 50 Year
  Sex: Male

DRUGS (4)
  1. ARIPIPRAZOLE [Suspect]
     Active Substance: ARIPIPRAZOLE
     Indication: Psychotic disorder
     Dates: start: 20250113, end: 20250210
  2. LEVOMEPROMAZINE HYDROCHLORIDE [Concomitant]
     Active Substance: LEVOMEPROMAZINE HYDROCHLORIDE
     Indication: Psychotic disorder
     Dates: start: 20241205, end: 20250210
  3. OLANZAPINE [Concomitant]
     Active Substance: OLANZAPINE
     Indication: Psychotic disorder
     Dates: start: 20250113
  4. SERTRALINE [Concomitant]
     Active Substance: SERTRALINE HYDROCHLORIDE
     Indication: Psychotic disorder
     Dates: start: 20250113

REACTIONS (3)
  - Extrapyramidal disorder [Recovered/Resolved]
  - Muscle rigidity [Recovered/Resolved]
  - Dysphagia [Recovered/Resolved]

NARRATIVE: CASE EVENT DATE: 20250210
